FAERS Safety Report 7751496-9 (Version None)
Quarter: 2011Q3

REPORT INFORMATION
  Report Type: 
  Country: None (occurrence: None)
  Receive Date: 20110914
  Receipt Date: 20110831
  Transmission Date: 20111222
  Serious: Yes (Other)
  Sender: FDA-Public Use
  Company Number: PHEH2011US03097

PATIENT
  Sex: Female

DRUGS (2)
  1. DIOVAN [Suspect]
     Dosage: 160 MG, ONCE PER DAY
  2. DRUG USED IN DIABETES [Concomitant]

REACTIONS (2)
  - ARTHRITIS [None]
  - SPINAL COLUMN STENOSIS [None]
